FAERS Safety Report 9034113 (Version 1)
Quarter: 2013Q1

REPORT INFORMATION
  Report Type: Spontaneous
  Country: US (occurrence: None)
  Receive Date: 20130114
  Receipt Date: 20130114
  Transmission Date: 20140127
  Serious: Yes (Other)
  Sender: FDA-Public Use
  Company Number: 2013P1000012

PATIENT
  Age: 49 Year
  Sex: Male
  Weight: 146.06 kg

DRUGS (8)
  1. BUTALBITAL ACETAMINOPHEN + CAFFEINE [Suspect]
     Indication: HEADACHE
     Dosage: 1-2 TABLETS
     Route: 048
     Dates: start: 201211, end: 201212
  2. BUTALBITAL ACETAMINOPHEN + CAFFEINE [Suspect]
     Indication: BACK PAIN
     Dosage: 1-2 TABLETS
     Route: 048
     Dates: start: 201211, end: 201212
  3. CAPTOPRIL? [Suspect]
     Indication: BACK PAIN
  4. VICODIN [Concomitant]
  5. TYLENOL [Concomitant]
  6. TYLENOL PM [Concomitant]
  7. BENADRYL [Concomitant]
  8. UNSPECIFIED DIURETIC [Concomitant]

REACTIONS (3)
  - Sedation [None]
  - Aggression [None]
  - Blood pressure inadequately controlled [None]
